FAERS Safety Report 9694637 (Version 2)
Quarter: 2013Q4

REPORT INFORMATION
  Report Type: Spontaneous
  Country: JP (occurrence: JP)
  Receive Date: 20131119
  Receipt Date: 20131210
  Transmission Date: 20140711
  Serious: Yes (Other)
  Sender: FDA-Public Use
  Company Number: JP-009507513-1311JPN006194

PATIENT
  Age: 75 Year
  Sex: Female

DRUGS (2)
  1. TEMODAL [Suspect]
     Dosage: THE SECOND CYCLE, DAILY DOSAGE WAS UNKNOWN
     Route: 048
  2. TEMODAL [Suspect]
     Dosage: THE FIRST CYCLE, DAILY DOSAGE
     Route: 048

REACTIONS (1)
  - Deafness [Unknown]
